FAERS Safety Report 4703027-5 (Version None)
Quarter: 2005Q2

REPORT INFORMATION
  Report Type: 
  Country: None (occurrence: None)
  Receive Date: 20050628
  Receipt Date: 20050628
  Transmission Date: 20051028
  Serious: No
  Sender: FDA-Public Use
  Company Number: None

PATIENT

DRUGS (2)
  1. PAXIL [Suspect]
  2. SEROQUEL [Suspect]
     Dosage: TWICE

REACTIONS (3)
  - HALLUCINATIONS, MIXED [None]
  - MALAISE [None]
  - WEIGHT INCREASED [None]
